FAERS Safety Report 7131405-6 (Version None)
Quarter: 2010Q4

REPORT INFORMATION
  Report Type: 
  Country: None (occurrence: None)
  Receive Date: 20101124
  Receipt Date: 20101124
  Transmission Date: 20110411
  Serious: Yes (Hospitalization)
  Sender: FDA-Public Use
  Company Number: None

PATIENT
  Sex: Male
  Weight: 72.9 kg

DRUGS (5)
  1. RITUXAMAB UNKNOWN UNKNOWN [Suspect]
     Indication: NON-HODGKIN'S LYMPHOMA
     Dosage: 682.5 MG EVERY 21 DAYS IV DRIP
     Route: 041
     Dates: start: 20100817, end: 20101019
  2. CYCLOPHOSPHAMIDE [Suspect]
     Dosage: 1365 MG EVERY 21 DAYS IV DRIP
     Route: 041
     Dates: start: 20100817, end: 20101019
  3. DOXORUBICIN HCL [Concomitant]
  4. VINCRISTINE [Concomitant]
  5. PREDNISONE [Concomitant]

REACTIONS (4)
  - CHILLS [None]
  - DEHYDRATION [None]
  - HYPOTENSION [None]
  - NEUTROPENIA [None]
